FAERS Safety Report 20997979 (Version 1)
Quarter: 2022Q2

REPORT INFORMATION
  Report Type: Spontaneous
  Country: US (occurrence: US)
  Receive Date: 20220623
  Receipt Date: 20220623
  Transmission Date: 20220721
  Serious: No
  Sender: FDA-Public Use
  Company Number: US-BioDelivery Sciences International-2022BDSI0091

PATIENT
  Age: 69 Year
  Sex: Female
  Weight: 106.69 kg

DRUGS (19)
  1. BELBUCA [Suspect]
     Active Substance: BUPRENORPHINE HYDROCHLORIDE
     Indication: Pain
     Route: 002
     Dates: start: 20220224, end: 20220227
  2. BELBUCA [Suspect]
     Active Substance: BUPRENORPHINE HYDROCHLORIDE
     Route: 002
     Dates: start: 20220303, end: 20220304
  3. BASAGLAR [Concomitant]
     Active Substance: INSULIN GLARGINE
     Indication: Diabetes mellitus
     Route: 065
  4. CARVEDILOL [Concomitant]
     Active Substance: CARVEDILOL
     Indication: Hypertension
     Dosage: UNKNOWN, UNKNOWN
     Route: 065
  5. CIMETIDINE [Concomitant]
     Active Substance: CIMETIDINE
     Indication: Mastocytosis
     Dosage: UNKNOWN, UNKNOWN
     Route: 065
  6. CROMOLYN [Concomitant]
     Active Substance: CROMOLYN
     Indication: Mastocytosis
     Dosage: UNKNOWN, UNKNOWN
     Route: 065
  7. DESLORATADINE [Concomitant]
     Active Substance: DESLORATADINE
     Indication: Mastocytosis
     Dosage: UNKNOWN, UNKNOWN
     Route: 065
  8. EVOXAC [Concomitant]
     Active Substance: CEVIMELINE HYDROCHLORIDE
     Indication: Sjogren^s syndrome
     Dosage: UNKNOWN, UNKNOWN
     Route: 065
  9. FOSFOMYCIN [Concomitant]
     Active Substance: FOSFOMYCIN
     Indication: Urinary tract infection
     Dosage: UNKNOWN, UNKNOWN
     Route: 065
  10. TROMETHAMINE [Concomitant]
     Active Substance: TROMETHAMINE
     Indication: Urinary tract infection
     Dosage: UNKNOWN, UNKNOWN
     Route: 065
  11. FUROSEMIDE [Concomitant]
     Active Substance: FUROSEMIDE
     Indication: Fluid retention
     Dosage: UNKNOWN, UNKNOWN
     Route: 065
  12. FUROSEMIDE [Concomitant]
     Active Substance: FUROSEMIDE
     Indication: Hypertension
  13. Hydroxyvine [Concomitant]
     Indication: Mastocytosis
     Dosage: UNKNOWN, UNKNOWN
     Route: 065
  14. LEVOTHYROXINE [Concomitant]
     Active Substance: LEVOTHYROXINE
     Indication: Thyroid disorder
     Dosage: UNKNOWN, UNKNOWN
     Route: 065
  15. NEXIUM [Concomitant]
     Active Substance: ESOMEPRAZOLE MAGNESIUM
     Indication: Mastocytosis
     Dosage: UNKNOWN, UNKNOWN
     Route: 065
  16. NOVOLOG [Concomitant]
     Active Substance: INSULIN ASPART
     Indication: Diabetes mellitus
     Dosage: UNKNOWN, UNKNOWN
     Route: 065
  17. POTASSIUM CHLORIDE [Concomitant]
     Active Substance: POTASSIUM CHLORIDE
     Indication: Blood potassium decreased
     Dosage: UNKNOWN, UNKNOWN
     Route: 065
  18. PROBIOTICS NOS [Concomitant]
     Active Substance: PROBIOTICS NOS
     Indication: Gastric disorder
     Dosage: UNKNOWN, UNKNOWN
     Route: 065
  19. ROPINIROLE HYDROCHLORIDE [Concomitant]
     Active Substance: ROPINIROLE HYDROCHLORIDE
     Indication: Muscle spasms
     Dosage: UNKNOWN, UNKNOWN
     Route: 065

REACTIONS (2)
  - Drug ineffective [Unknown]
  - Product adhesion issue [Unknown]

NARRATIVE: CASE EVENT DATE: 20220101
